FAERS Safety Report 5340963-3 (Version None)
Quarter: 2007Q2

REPORT INFORMATION
  Report Type: 
  Country: None (occurrence: None)
  Receive Date: 20070405
  Receipt Date: 20070122
  Transmission Date: 20071010
  Serious: No
  Sender: FDA-Public Use
  Company Number: US200701004481

PATIENT
  Age: 30 Year
  Sex: Male

DRUGS (1)
  1. CYMBALTA [Suspect]
     Dosage: 30 MG,
     Dates: start: 20070115, end: 20070122

REACTIONS (2)
  - DISTURBANCE IN ATTENTION [None]
  - FEELING ABNORMAL [None]
